FAERS Safety Report 20855819 (Version 1)
Quarter: 2022Q2

REPORT INFORMATION
  Report Type: Spontaneous
  Country: CN (occurrence: CN)
  Receive Date: 20220520
  Receipt Date: 20220520
  Transmission Date: 20220720
  Serious: Yes (Other)
  Sender: FDA-Public Use
  Company Number: CN-PFIZER INC-202200696400

PATIENT
  Sex: Male
  Weight: 70 kg

DRUGS (4)
  1. AVIBACTAM SODIUM\CEFTAZIDIME [Suspect]
     Active Substance: AVIBACTAM SODIUM\CEFTAZIDIME
     Indication: Intracranial infection
     Dosage: 2.5 G, TID
     Route: 041
     Dates: start: 20220213, end: 20220215
  2. VANCOCIN [Suspect]
     Active Substance: VANCOMYCIN HYDROCHLORIDE
     Indication: Intracranial infection
     Dosage: 1 G, BID
     Route: 041
     Dates: start: 20220130, end: 20220215
  3. MEROPENEM [Concomitant]
     Active Substance: MEROPENEM
     Indication: Intracranial infection
     Dosage: 2 G, TID
     Route: 041
     Dates: start: 20220130, end: 20220213
  4. MEROPENEM [Concomitant]
     Active Substance: MEROPENEM
     Dosage: 2 G, TID
     Route: 041
     Dates: start: 20220215, end: 20220217

REACTIONS (5)
  - Drug eruption [Recovering/Resolving]
  - Rash [Recovering/Resolving]
  - Pustule [Recovering/Resolving]
  - Swelling face [Recovering/Resolving]
  - Rash maculo-papular [Recovering/Resolving]

NARRATIVE: CASE EVENT DATE: 20220215
